FAERS Safety Report 8556004-0 (Version None)
Quarter: 2012Q3

REPORT INFORMATION
  Report Type: 
  Country: None (occurrence: None)
  Receive Date: 20120801
  Receipt Date: 20120723
  Transmission Date: 20120928
  Serious: Yes (Other)
  Sender: FDA-Public Use
  Company Number: US-MSD-1207USA009764

PATIENT

DRUGS (2)
  1. LIPITOR [Suspect]
  2. ZOCOR [Suspect]
     Route: 048

REACTIONS (4)
  - ABASIA [None]
  - BEDRIDDEN [None]
  - MYALGIA [None]
  - THROMBOSIS [None]
